FAERS Safety Report 18854803 (Version 1)
Quarter: 2021Q1

REPORT INFORMATION
  Report Type: Report from Study
  Country: US (occurrence: US)
  Receive Date: 20210205
  Receipt Date: 20210205
  Transmission Date: 20210420
  Serious: Yes (Death)
  Sender: FDA-Public Use
  Company Number: US-JNJFOC-20210142264

PATIENT
  Age: 77 Year
  Sex: Female
  Weight: 54.5 kg

DRUGS (1)
  1. SELEXIPAG [Suspect]
     Active Substance: SELEXIPAG
     Indication: PULMONARY ARTERIAL HYPERTENSION
     Route: 048
     Dates: start: 20171101

REACTIONS (3)
  - Cardiac disorder [Fatal]
  - Lung disorder [Fatal]
  - Liver disorder [Fatal]

NARRATIVE: CASE EVENT DATE: 20210123
